FAERS Safety Report 4879523-7 (Version None)
Quarter: 2006Q1

REPORT INFORMATION
  Report Type: 
  Country: None (occurrence: None)
  Receive Date: 20060111
  Receipt Date: 20051227
  Transmission Date: 20060701
  Serious: Yes (Other)
  Sender: FDA-Public Use
  Company Number: 220640

PATIENT
  Age: 36 Year
  Sex: Female

DRUGS (1)
  1. XOLAIR [Suspect]
     Dosage: 300 SUBCUTANEOUS
     Route: 058
     Dates: start: 20051112, end: 20051210

REACTIONS (3)
  - ERYTHEMA [None]
  - HEADACHE [None]
  - RESPIRATORY RATE INCREASED [None]
